FAERS Safety Report 9255105 (Version 1)
Quarter: 2013Q2

REPORT INFORMATION
  Report Type: Spontaneous
  Country: DK (occurrence: AU)
  Receive Date: 20130425
  Receipt Date: 20130425
  Transmission Date: 20140414
  Serious: Yes (Hospitalization)
  Sender: FDA-Public Use
  Company Number: AU-FRI-1000044673

PATIENT
  Age: 77 Year
  Sex: Female

DRUGS (5)
  1. ESCITALOPRAM [Suspect]
     Indication: DEPRESSION
     Dosage: 20 MG
     Route: 048
     Dates: start: 20121015
  2. ESCITALOPRAM [Suspect]
     Dosage: 10 MG
     Route: 048
  3. TRAMADOL HYDROCHLORIDE [Suspect]
     Indication: PAIN
     Dosage: 200 MG
     Route: 048
     Dates: start: 20121015
  4. PARACETAMOL [Concomitant]
     Dosage: 1995 MG
  5. VITAMIN B12 NOS [Concomitant]

REACTIONS (5)
  - Serotonin syndrome [Recovered/Resolved]
  - Tremor [Recovered/Resolved]
  - Headache [Recovered/Resolved]
  - Polyuria [Recovered/Resolved]
  - Hyperhidrosis [Recovered/Resolved]
